FAERS Safety Report 8352898-2 (Version None)
Quarter: 2012Q2

REPORT INFORMATION
  Report Type: 
  Country: None (occurrence: None)
  Receive Date: 20120511
  Receipt Date: 20120507
  Transmission Date: 20120825
  Serious: Yes (Other)
  Sender: FDA-Public Use
  Company Number: ES-SANOFI-AVENTIS-2012SA032113

PATIENT
  Age: 50 Year
  Sex: Male

DRUGS (3)
  1. SINTROM [Concomitant]
     Indication: ATRIAL FIBRILLATION
     Dosage: HEMATOLOGIC REGIMEN
     Route: 048
  2. MULTAQ [Suspect]
     Indication: ATRIAL FIBRILLATION
     Route: 048
     Dates: start: 20120109, end: 20120328
  3. ACETAMINOPHEN [Concomitant]
     Indication: PAIN
     Dosage: SI PRECISA POR DOLOR
     Route: 048

REACTIONS (1)
  - HYPERTHYROIDISM [None]
